FAERS Safety Report 10547248 (Version 2)
Quarter: 2014Q4

REPORT INFORMATION
  Report Type: Spontaneous
  Country: IT (occurrence: IT)
  Receive Date: 20141028
  Receipt Date: 20141028
  Transmission Date: 20150529
  Serious: Yes (Death, Hospitalization)
  Sender: FDA-Public Use
  Company Number: IT-AUROBINDO-AUR-APL-2014-03035

PATIENT
  Age: 35 Year
  Sex: Female

DRUGS (2)
  1. LEVOFLOXACIN 500MG [Suspect]
     Active Substance: LEVOFLOXACIN
     Indication: MENISCUS REMOVAL
     Dosage: 500 MG,DAILY,
     Route: 048
     Dates: start: 20140205, end: 20140209
  2. CLEXANE [Suspect]
     Active Substance: ENOXAPARIN SODIUM
     Indication: MENISCUS REMOVAL
     Dosage: 1 DF,DAILY,
     Route: 058
     Dates: start: 20140131, end: 20140209

REACTIONS (2)
  - Rash [Recovering/Resolving]
  - Pruritus [Recovering/Resolving]

NARRATIVE: CASE EVENT DATE: 20140210
